FAERS Safety Report 15791347 (Version 1)
Quarter: 2019Q1

REPORT INFORMATION
  Report Type: Report from Study
  Country: BE (occurrence: BE)
  Receive Date: 20190104
  Receipt Date: 20190104
  Transmission Date: 20190417
  Serious: Yes (Hospitalization)
  Sender: FDA-Public Use
  Company Number: BE-SAOL THERAPEUTICS-2018SAO01145

PATIENT
  Sex: Female

DRUGS (1)
  1. LIORESAL [Suspect]
     Active Substance: BACLOFEN
     Dosage: 40.05215 ?G, \DAY
     Route: 037
     Dates: start: 20180808

REACTIONS (3)
  - Anaemia [Recovered/Resolved]
  - Multiple sclerosis [Recovered/Resolved]
  - Viral infection [Recovered/Resolved]

NARRATIVE: CASE EVENT DATE: 20180817
